FAERS Safety Report 9122365 (Version 1)
Quarter: 2013Q1

REPORT INFORMATION
  Report Type: Report from Study
  Country: CA (occurrence: CA)
  Receive Date: 20130114
  Receipt Date: 20130114
  Transmission Date: 20140127
  Serious: Yes (Other)
  Sender: FDA-Public Use
  Company Number: CA-JNJFOC-20130103629

PATIENT
  Sex: Male
  Weight: 65.7 kg

DRUGS (2)
  1. REMICADE [Suspect]
     Indication: COLITIS ULCERATIVE
     Route: 042
     Dates: start: 20121012, end: 20121122
  2. CALCIUM WITH VITAMIN D [Concomitant]
     Route: 065

REACTIONS (3)
  - Inflammation [Unknown]
  - Fatigue [Unknown]
  - Drug ineffective [Unknown]
